FAERS Safety Report 6481177-3 (Version None)
Quarter: 2009Q4

REPORT INFORMATION
  Report Type: 
  Country: None (occurrence: None)
  Receive Date: 20091208
  Receipt Date: 20090408
  Transmission Date: 20100525
  Serious: No
  Sender: FDA-Public Use
  Company Number: US-AMGEN-KDL338069

PATIENT
  Sex: Female

DRUGS (5)
  1. ENBREL [Suspect]
     Indication: ANKYLOSING SPONDYLITIS
     Route: 058
     Dates: start: 20071201
  2. SULFASALAZINE [Concomitant]
  3. DICLOFENAC [Concomitant]
  4. FLEXERIL [Concomitant]
  5. FLUOXETINE [Concomitant]

REACTIONS (8)
  - DYSPEPSIA [None]
  - FIBROMYALGIA [None]
  - GAIT DISTURBANCE [None]
  - GASTRIC BANDING [None]
  - GROIN PAIN [None]
  - JOINT CREPITATION [None]
  - RASH MACULO-PAPULAR [None]
  - RASH PRURITIC [None]
